FAERS Safety Report 10067773 (Version 8)
Quarter: 2015Q1

REPORT INFORMATION
  Report Type: Report from Study
  Country: MX (occurrence: MX)
  Receive Date: 20140409
  Receipt Date: 20150227
  Transmission Date: 20150720
  Serious: Yes (Life-Threatening, Disabling, Other)
  Sender: FDA-Public Use
  Company Number: MX-ROCHE-1312071

PATIENT
  Age: 39 Year
  Sex: Female
  Weight: 80 kg

DRUGS (14)
  1. ROACTEMRA [Suspect]
     Active Substance: TOCILIZUMAB
     Indication: RHEUMATOID ARTHRITIS
     Dosage: MOST RECENT DOSE UNSPECIFIED DATE OF JUNE OR JULY.
     Route: 042
     Dates: start: 20101028, end: 20140308
  2. MABTHERA [Suspect]
     Active Substance: RITUXIMAB
     Indication: RHEUMATOID ARTHRITIS
     Route: 065
     Dates: start: 2011, end: 2012
  3. INFLIXIMAB [Suspect]
     Active Substance: INFLIXIMAB
     Indication: RHEUMATOID ARTHRITIS
     Route: 065
     Dates: start: 2012, end: 201309
  4. PREDNISONE. [Suspect]
     Active Substance: PREDNISONE
     Route: 048
  5. ROACTEMRA [Suspect]
     Active Substance: TOCILIZUMAB
     Route: 042
     Dates: start: 20131126
  6. DEFLAZACORT [Concomitant]
     Active Substance: DEFLAZACORT
     Indication: RHEUMATOID ARTHRITIS
     Route: 048
  7. PREDNISONE. [Suspect]
     Active Substance: PREDNISONE
     Indication: RHEUMATOID ARTHRITIS
     Route: 048
     Dates: start: 201306, end: 201309
  8. PREDNISONE. [Suspect]
     Active Substance: PREDNISONE
     Dosage: DOSE INCREASE (NOT SPECIFIED) DUE TO ARTHRALGIA
     Route: 048
     Dates: start: 201310, end: 201402
  9. DICLOFENAC [Concomitant]
     Active Substance: DICLOFENAC
     Indication: RHEUMATOID ARTHRITIS
     Route: 048
  10. LEFLUNOMIDE. [Concomitant]
     Active Substance: LEFLUNOMIDE
     Indication: RHEUMATOID ARTHRITIS
     Route: 048
  11. DEXAMETHASONE. [Suspect]
     Active Substance: DEXAMETHASONE
     Indication: PRODUCT USED FOR UNKNOWN INDICATION
     Route: 065
  12. SULFASALAZINE. [Concomitant]
     Active Substance: SULFASALAZINE
     Route: 048
  13. ADALIMUMAB [Suspect]
     Active Substance: ADALIMUMAB
     Indication: RHEUMATOID ARTHRITIS
     Route: 065
     Dates: start: 201310, end: 2013
  14. ROACTEMRA [Suspect]
     Active Substance: TOCILIZUMAB
     Route: 042

REACTIONS (33)
  - Mood altered [Not Recovered/Not Resolved]
  - Swelling [Not Recovered/Not Resolved]
  - Oesophageal disorder [Recovering/Resolving]
  - Throat tightness [Recovered/Resolved]
  - Cushing^s syndrome [Recovering/Resolving]
  - Back pain [Not Recovered/Not Resolved]
  - Cough [Not Recovered/Not Resolved]
  - Dysstasia [Not Recovered/Not Resolved]
  - Mobility decreased [Unknown]
  - Arthropathy [Unknown]
  - Somnolence [Recovered/Resolved]
  - Emotional disorder [Not Recovered/Not Resolved]
  - Arthralgia [Not Recovered/Not Resolved]
  - Ear pain [Not Recovered/Not Resolved]
  - Weight increased [Not Recovered/Not Resolved]
  - Asthenia [Not Recovered/Not Resolved]
  - Malaise [Not Recovered/Not Resolved]
  - Muscle rigidity [Not Recovered/Not Resolved]
  - Decreased appetite [Recovering/Resolving]
  - Dizziness [Unknown]
  - Tachycardia [Recovered/Resolved]
  - Drug ineffective [Unknown]
  - Vision blurred [Recovered/Resolved]
  - Oropharyngeal pain [Not Recovered/Not Resolved]
  - Feeling of despair [Unknown]
  - Vaginal infection [Unknown]
  - Kidney infection [Unknown]
  - Gait disturbance [Not Recovered/Not Resolved]
  - Dysphagia [Recovering/Resolving]
  - Upper respiratory tract infection [Unknown]
  - Headache [Recovered/Resolved]
  - Gastrooesophageal reflux disease [Recovering/Resolving]
  - Dyspnoea [Unknown]

NARRATIVE: CASE EVENT DATE: 2012
